FAERS Safety Report 12562249 (Version 1)
Quarter: 2016Q3

REPORT INFORMATION
  Report Type: Report from Study
  Country: BR (occurrence: BR)
  Receive Date: 20160715
  Receipt Date: 20160715
  Transmission Date: 20161109
  Serious: Yes (Other)
  Sender: FDA-Public Use
  Company Number: PHHY2016BR002242

PATIENT
  Age: 68 Year
  Sex: Female
  Weight: 90 kg

DRUGS (1)
  1. FORASEQ [Suspect]
     Active Substance: BUDESONIDE\FORMOTEROL FUMARATE
     Indication: ASTHMA
     Dosage: 1 DF (BUDESONIDE 400 UG AND FORMOTEROL FUMARATE 12 UG), BID (1 IN MORNING AND 1 IN NIGHT)
     Route: 055

REACTIONS (8)
  - Blindness unilateral [Not Recovered/Not Resolved]
  - Emotional disorder [Recovered/Resolved]
  - Retinal disorder [Recovered/Resolved]
  - Gait disturbance [Unknown]
  - Dyspnoea [Unknown]
  - Nasopharyngitis [Recovering/Resolving]
  - Asthma [Unknown]
  - Wrong technique in product usage process [Unknown]

NARRATIVE: CASE EVENT DATE: 20160704
